FAERS Safety Report 24770479 (Version 1)
Quarter: 2024Q4

REPORT INFORMATION
  Report Type: Spontaneous
  Country: US (occurrence: US)
  Receive Date: 20241224
  Receipt Date: 20241224
  Transmission Date: 20250115
  Serious: Yes (Hospitalization, Other)
  Sender: RANBAXY
  Company Number: US-SUN PHARMACEUTICAL INDUSTRIES LTD-2024R1-485932

PATIENT
  Sex: Female

DRUGS (2)
  1. MORPHINE [Suspect]
     Active Substance: MORPHINE
     Indication: Wound
     Dosage: UNK
     Route: 065
     Dates: start: 2023
  2. MORPHINE [Suspect]
     Active Substance: MORPHINE
     Indication: Pain

REACTIONS (5)
  - Condition aggravated [Unknown]
  - Diabetes mellitus [Unknown]
  - Hidradenitis [Unknown]
  - Fibromyalgia [Unknown]
  - Product dose omission issue [Unknown]
